FAERS Safety Report 6219406-3 (Version None)
Quarter: 2009Q2

REPORT INFORMATION
  Report Type: 
  Country: None (occurrence: None)
  Receive Date: 20090609
  Receipt Date: 20090528
  Transmission Date: 20091009
  Serious: Yes (Hospitalization)
  Sender: FDA-Public Use
  Company Number: DE-BIOGENIDEC-2009BI016245

PATIENT
  Age: 55 Year
  Sex: Female

DRUGS (3)
  1. TYSABRI [Suspect]
     Indication: MULTIPLE SCLEROSIS
     Route: 042
     Dates: start: 20081101
  2. LYRICA [Concomitant]
     Indication: PAIN
     Dates: start: 20090114
  3. VENLAFAXINE HCL [Concomitant]
     Indication: DEPRESSION
     Dates: start: 20070101

REACTIONS (1)
  - THROMBOSIS [None]
